FAERS Safety Report 8693536 (Version 3)
Quarter: 2013Q1

REPORT INFORMATION
  Report Type: Report from Study
  Country: FR (occurrence: FR)
  Receive Date: 20120730
  Receipt Date: 20130118
  Transmission Date: 20140127
  Serious: Yes (Life-Threatening, Hospitalization)
  Sender: FDA-Public Use
  Company Number: FR-BRISTOL-MYERS SQUIBB COMPANY-16719197

PATIENT
  Age: 66 Year
  Sex: Male
  Weight: 75 kg

DRUGS (5)
  1. CETUXIMAB [Suspect]
     Indication: NON-SMALL CELL LUNG CANCER
     Dosage: RECENT INF 20JUN12?NO OF INF 67
     Route: 042
     Dates: start: 20110315
  2. CISPLATIN FOR INJ [Suspect]
     Indication: NON-SMALL CELL LUNG CANCER
     Dosage: NO OF INF:6?LAST INF DT 12JUL11
     Route: 042
     Dates: start: 20110315, end: 20110712
  3. CILENGITIDE [Suspect]
     Indication: NON-SMALL CELL LUNG CANCER
     Dosage: NO OF INF 88?LAST INF 20JUN12
     Route: 042
     Dates: start: 20110315
  4. GEMCITABINE [Suspect]
     Indication: NON-SMALL CELL LUNG CANCER
     Dosage: DAY1,DAY 8 OF EACH 3WK CYCLE?NO OF INF 12
     Route: 042
     Dates: start: 20110719, end: 20120315
  5. PLAVIX [Concomitant]
     Route: 048
     Dates: start: 2009

REACTIONS (1)
  - Pulmonary embolism [Recovered/Resolved]
